FAERS Safety Report 9737437 (Version 2)
Quarter: 2013Q4

REPORT INFORMATION
  Report Type: Spontaneous
  Country: PL (occurrence: PL)
  Receive Date: 20131206
  Receipt Date: 20131206
  Transmission Date: 20140711
  Serious: Yes (Death, Hospitalization)
  Sender: FDA-Public Use
  Company Number: PHHY2013PL067018

PATIENT
  Age: 42 Year
  Sex: Female

DRUGS (2)
  1. ANAFRANIL [Suspect]
     Dosage: 60 DF, UNK
     Route: 048
  2. DOXEPIN [Suspect]
     Dosage: 30 DF, UNK

REACTIONS (18)
  - Multi-organ failure [Fatal]
  - Circulatory collapse [Fatal]
  - Cardiotoxicity [Fatal]
  - Respiratory failure [Fatal]
  - Renal failure [Fatal]
  - Cardiovascular insufficiency [Fatal]
  - Blood pressure decreased [Fatal]
  - Sinus tachycardia [Fatal]
  - Anuria [Fatal]
  - Hepatic failure [Fatal]
  - Toxicity to various agents [Fatal]
  - Loss of consciousness [Fatal]
  - Bezoar [Unknown]
  - Ileus paralytic [Unknown]
  - Suicidal ideation [Unknown]
  - Convulsion [Unknown]
  - Drug abuse [Unknown]
  - Intentional overdose [Unknown]
